FAERS Safety Report 15379849 (Version 7)
Quarter: 2020Q4

REPORT INFORMATION
  Report Type: Report from Study
  Country: US (occurrence: US)
  Receive Date: 20180913
  Receipt Date: 20201022
  Transmission Date: 20210113
  Serious: Yes (Other)
  Sender: FDA-Public Use
  Company Number: US-ASTELLAS-2018US014571

PATIENT
  Age: 69 Year
  Sex: Male

DRUGS (1)
  1. ENZALUTAMIDE [Suspect]
     Active Substance: ENZALUTAMIDE
     Indication: PROSTATE CANCER
     Route: 048
     Dates: start: 2012

REACTIONS (8)
  - Neuropathy peripheral [Not Recovered/Not Resolved]
  - Nephropathy [Unknown]
  - Tinnitus [Not Recovered/Not Resolved]
  - Somnolence [Recovered/Resolved]
  - Memory impairment [Not Recovered/Not Resolved]
  - Nightmare [Unknown]
  - Dizziness postural [Not Recovered/Not Resolved]
  - Pain in extremity [Unknown]

NARRATIVE: CASE EVENT DATE: 20191231
